FAERS Safety Report 5507725-5 (Version None)
Quarter: 2007Q4

REPORT INFORMATION
  Report Type: 
  Country: None (occurrence: None)
  Receive Date: 20071105
  Receipt Date: 20071105
  Transmission Date: 20080405
  Serious: Yes (Other)
  Sender: FDA-Public Use
  Company Number: None

PATIENT
  Age: 54 Year
  Sex: Male
  Weight: 72.1219 kg

DRUGS (1)
  1. FLUNISOLIDE [Suspect]
     Indication: MYCOTIC ALLERGY
     Dosage: 2 SPAYS EACH NOSTRIL TWICE A DAY NASAL
     Route: 045

REACTIONS (3)
  - LIVER DISORDER [None]
  - MALAISE [None]
  - PHARMACEUTICAL PRODUCT COMPLAINT [None]
